FAERS Safety Report 23303348 (Version 1)
Quarter: 2023Q4

REPORT INFORMATION
  Report Type: Report from Study
  Country: US (occurrence: US)
  Receive Date: 20231215
  Receipt Date: 20231215
  Transmission Date: 20240110
  Serious: Yes (Hospitalization)
  Sender: FDA-Public Use
  Company Number: US-Eisai-EC-2023-155147

PATIENT
  Age: 73 Year
  Sex: Male

DRUGS (3)
  1. LENVIMA [Suspect]
     Active Substance: LENVATINIB
     Indication: Renal cancer
     Dates: start: 202303, end: 2023
  2. LENVIMA [Suspect]
     Active Substance: LENVATINIB
     Dates: start: 2023, end: 20231203
  3. LENVIMA [Suspect]
     Active Substance: LENVATINIB
     Dates: start: 20231204

REACTIONS (1)
  - Blood creatinine abnormal [Unknown]

NARRATIVE: CASE EVENT DATE: 20230601
